APPROVED DRUG PRODUCT: PROBUPHINE
Active Ingredient: BUPRENORPHINE HYDROCHLORIDE
Strength: EQ 80MG BASE/IMPLANT
Dosage Form/Route: IMPLANT;IMPLANTATION
Application: N204442 | Product #001
Applicant: REACX PHARMACEUTICALS INC
Approved: May 26, 2016 | RLD: Yes | RS: No | Type: DISCN